FAERS Safety Report 7658581-0 (Version None)
Quarter: 2011Q3

REPORT INFORMATION
  Report Type: 
  Country: None (occurrence: None)
  Receive Date: 20110802
  Receipt Date: 20110718
  Transmission Date: 20111222
  Serious: Yes (Hospitalization)
  Sender: FDA-Public Use
  Company Number: GLIP20110002

PATIENT
  Age: 18 Year
  Sex: Female

DRUGS (1)
  1. GLIPIZIDE (GLIPIZIDE) (35 MILLIGRAM, UNKNOWN) [Suspect]
     Indication: ACCIDENTAL EXPOSURE
     Dosage: 35 MG

REACTIONS (5)
  - CONVULSION [None]
  - VOMITING [None]
  - HYPOGLYCAEMIA [None]
  - ACCIDENTAL EXPOSURE [None]
  - ACCIDENTAL OVERDOSE [None]
